FAERS Safety Report 23063007 (Version 1)
Quarter: 2023Q4

REPORT INFORMATION
  Report Type: Spontaneous
  Country: US (occurrence: None)
  Receive Date: 20231012
  Receipt Date: 20231012
  Transmission Date: 20240110
  Serious: Yes (Hospitalization)
  Sender: FDA-Public Use
  Company Number: None

PATIENT
  Age: 74 Year
  Sex: Female

DRUGS (1)
  1. LENALIDOMIDE [Suspect]
     Active Substance: LENALIDOMIDE
     Indication: Plasma cell myeloma
     Dosage: FREQUENCY : DAILY;?
     Route: 048
     Dates: start: 20230830

REACTIONS (8)
  - Escherichia test positive [None]
  - Enterococcal infection [None]
  - Pyrexia [None]
  - Cough [None]
  - Wheezing [None]
  - Pneumonia [None]
  - Sepsis [None]
  - Therapy interrupted [None]

NARRATIVE: CASE EVENT DATE: 20230904
